FAERS Safety Report 7361412-X (Version None)
Quarter: 2011Q1

REPORT INFORMATION
  Report Type: 
  Country: None (occurrence: None)
  Receive Date: 20110318
  Receipt Date: 20110221
  Transmission Date: 20110831
  Serious: No
  Sender: FDA-Public Use
  Company Number: US-B.I. PHARMACEUTICALS,INC./RIDGEFIELD-2010-BP-13940BP

PATIENT
  Age: 90 Year
  Sex: Female

DRUGS (9)
  1. PRADAXA [Suspect]
     Indication: CARDIAC MURMUR
  2. SPIRIVA [Concomitant]
     Indication: CHRONIC OBSTRUCTIVE PULMONARY DISEASE
     Route: 055
     Dates: start: 20100201
  3. CARVIDOL [Concomitant]
     Indication: CARDIAC DISORDER
     Dates: start: 20080101
  4. PRADAXA [Suspect]
     Indication: HEART RATE IRREGULAR
  5. PRADAXA [Suspect]
     Indication: ATRIAL FIBRILLATION
     Dosage: 300 MG
     Route: 048
     Dates: start: 20101127
  6. LEVOTHYROXINE SODIUM [Concomitant]
     Indication: HYPOTHYROIDISM
     Dates: start: 20090101
  7. ADVAIR DISKUS 100/50 [Concomitant]
     Indication: CHRONIC OBSTRUCTIVE PULMONARY DISEASE
  8. PRAVASTATIN [Concomitant]
     Indication: BLOOD CHOLESTEROL INCREASED
     Dosage: 20 MG
  9. MULTAQ [Concomitant]
     Indication: CARDIAC DISORDER
     Dosage: 400 MG

REACTIONS (1)
  - BLOOD PRESSURE INCREASED [None]
